FAERS Safety Report 9463134 (Version 1)
Quarter: 2013Q3

REPORT INFORMATION
  Report Type: Report from Study
  Country: US (occurrence: US)
  Receive Date: 20130816
  Receipt Date: 20130816
  Transmission Date: 20140515
  Serious: Yes (Other)
  Sender: FDA-Public Use
  Company Number: US-009507513-1308USA004610

PATIENT
  Sex: 0

DRUGS (4)
  1. VICTRELIS [Suspect]
     Indication: HEPATITIS C
  2. REBETOL [Suspect]
     Indication: HEPATITIS C
  3. PEGINTERFERON ALFA-2A [Suspect]
     Indication: HEPATITIS C
  4. TELAPREVIR [Suspect]
     Indication: HEPATITIS C

REACTIONS (4)
  - Pancytopenia [Unknown]
  - Bacteraemia [Unknown]
  - Hepatic failure [Unknown]
  - Anaemia [Unknown]
